FAERS Safety Report 24201323 (Version 1)
Quarter: 2024Q3

REPORT INFORMATION
  Report Type: Spontaneous
  Country: US (occurrence: US)
  Receive Date: 20240812
  Receipt Date: 20240812
  Transmission Date: 20241017
  Serious: Yes (Other)
  Sender: ACCORD
  Company Number: US-Accord-270347

PATIENT
  Age: 75 Year
  Sex: Male

DRUGS (7)
  1. ROPINIROLE [Suspect]
     Active Substance: ROPINIROLE
     Indication: Parkinson^s disease
     Dosage: UNK
  2. RELUGOLIX [Suspect]
     Active Substance: RELUGOLIX
     Indication: Prostate cancer
     Dosage: 360 MILLIGRAM, ONE TIME DOSE
     Dates: start: 20211021, end: 20211021
  3. BUMEX [Suspect]
     Active Substance: BUMETANIDE
     Indication: Product used for unknown indication
     Dosage: UNK
  4. OXYGEN [Concomitant]
     Active Substance: OXYGEN
     Indication: Respiratory failure
     Dosage: UNK
  5. RELUGOLIX [Suspect]
     Active Substance: RELUGOLIX
     Indication: Prostate cancer
     Dosage: 120 MILLIGRAM, QD
     Dates: start: 20211021
  6. RELUGOLIX [Suspect]
     Active Substance: RELUGOLIX
     Indication: Prostate cancer
  7. RELUGOLIX [Suspect]
     Active Substance: RELUGOLIX
     Indication: Prostate cancer

REACTIONS (14)
  - Pericardial effusion [Unknown]
  - Renal failure [Unknown]
  - Cardiac failure congestive [Unknown]
  - Heart rate abnormal [Unknown]
  - Myalgia [Recovered/Resolved]
  - Malaise [Unknown]
  - Pulmonary pain [Unknown]
  - Dehydration [Unknown]
  - Pollakiuria [Unknown]
  - Depressed mood [Unknown]
  - Illness [Unknown]
  - Asthenia [Unknown]
  - Arthralgia [Recovered/Resolved]
  - Gynaecomastia [Unknown]

NARRATIVE: CASE EVENT DATE: 20211001
